FAERS Safety Report 9625844 (Version 1)
Quarter: 2013Q4

REPORT INFORMATION
  Report Type: Spontaneous
  Country: US (occurrence: None)
  Receive Date: 20131004
  Receipt Date: 20131004
  Transmission Date: 20140711
  Serious: Yes (Death)
  Sender: FDA-Public Use
  Company Number: AEUSA201300351

PATIENT
  Age: 49 Year
  Sex: Male

DRUGS (5)
  1. HYPERTET S/D [Suspect]
     Indication: TRISMUS
     Route: 030
     Dates: start: 20120726, end: 20120726
  2. NEURONTIN [Concomitant]
  3. AMITRIPTYLINE [Concomitant]
  4. KLONOPIN [Concomitant]
  5. PERPHENAZINE [Concomitant]

REACTIONS (8)
  - Confusional state [None]
  - Hyperhidrosis [None]
  - Dyspnoea [None]
  - Fall [None]
  - Loss of consciousness [None]
  - Cardio-respiratory arrest [None]
  - General physical health deterioration [None]
  - Coagulopathy [None]
